FAERS Safety Report 23850071 (Version 3)
Quarter: 2025Q3

REPORT INFORMATION
  Report Type: Spontaneous
  Country: US (occurrence: CA)
  Receive Date: 20240513
  Receipt Date: 20250704
  Transmission Date: 20251020
  Serious: Yes (Hospitalization, Disabling, Other)
  Sender: ORGANON
  Company Number: US-ORGANON-O2405CAN000726

PATIENT
  Age: 72 Year
  Sex: Male
  Weight: 95.238 kg

DRUGS (24)
  1. REMERON [Suspect]
     Active Substance: MIRTAZAPINE
     Indication: Depression
     Dosage: 45 MILLIGRAM, QD
     Dates: start: 20000101
  2. REMERON [Suspect]
     Active Substance: MIRTAZAPINE
     Dosage: DECREASED IT BY 7.5 MG PER MONTH
  3. REMERON [Suspect]
     Active Substance: MIRTAZAPINE
     Dosage: 21.5 MILLIGRAM, IN THE NIGHT
  4. REMERON [Suspect]
     Active Substance: MIRTAZAPINE
     Dosage: 21.5 MILLIGRAM, IN THE MORNING
  5. REMERON [Suspect]
     Active Substance: MIRTAZAPINE
     Dosage: 45 MILLIGRAM, QD (BACK ON FULL DOSE)
  6. REMERON [Suspect]
     Active Substance: MIRTAZAPINE
  7. AMLODIPINE\VALSARTAN [Concomitant]
     Active Substance: AMLODIPINE\VALSARTAN
     Route: 065
  8. CLONAZEPAM [Concomitant]
     Active Substance: CLONAZEPAM
     Route: 065
  9. SERTRALINE HYDROCHLORIDE [Concomitant]
     Active Substance: SERTRALINE HYDROCHLORIDE
     Route: 065
  10. TAMSULOSIN [Concomitant]
     Active Substance: TAMSULOSIN
     Route: 065
  11. OMEPRAZOLE [Concomitant]
     Active Substance: OMEPRAZOLE
     Route: 065
  12. FAMOTIDINE [Concomitant]
     Active Substance: FAMOTIDINE
     Route: 065
  13. ATORVASTATIN [Concomitant]
     Active Substance: ATORVASTATIN
     Route: 065
  14. EPLERENONE [Concomitant]
     Active Substance: EPLERENONE
     Route: 065
  15. TIZANIDINE [Concomitant]
     Active Substance: TIZANIDINE
     Route: 065
  16. MAGNESIUM [Concomitant]
     Active Substance: MAGNESIUM
     Route: 065
  17. VITAMINS [Concomitant]
     Active Substance: VITAMINS
     Route: 065
  18. ZINC [Concomitant]
     Active Substance: ZINC
     Route: 065
  19. VITAMIN D3 [Concomitant]
     Active Substance: CHOLECALCIFEROL
     Route: 065
  20. VITAMIN C [Concomitant]
     Active Substance: ASCORBIC ACID
     Route: 065
  21. GARLIC [Concomitant]
     Active Substance: GARLIC
     Route: 065
  22. QUERCETIN [Concomitant]
     Active Substance: QUERCETIN
     Route: 065
  23. ACETYLCYSTEINE [Concomitant]
     Active Substance: ACETYLCYSTEINE
     Route: 065
  24. CYCLOBENZAPRINE [Concomitant]
     Active Substance: CYCLOBENZAPRINE
     Route: 065

REACTIONS (21)
  - COVID-19 [Not Recovered/Not Resolved]
  - Seizure [Not Recovered/Not Resolved]
  - Drug dependence [Not Recovered/Not Resolved]
  - Chest discomfort [Not Recovered/Not Resolved]
  - Illness [Unknown]
  - Dehydration [Unknown]
  - Asthenia [Unknown]
  - Insomnia [Recovered/Resolved]
  - Tremor [Recovered/Resolved]
  - Musculoskeletal stiffness [Not Recovered/Not Resolved]
  - Dyspepsia [Not Recovered/Not Resolved]
  - Nervous system disorder [Not Recovered/Not Resolved]
  - Hyperventilation [Not Recovered/Not Resolved]
  - Hiatus hernia [Not Recovered/Not Resolved]
  - Diaphragmatic spasm [Not Recovered/Not Resolved]
  - Emotional distress [Not Recovered/Not Resolved]
  - Anxiety [Not Recovered/Not Resolved]
  - Dizziness [Not Recovered/Not Resolved]
  - Product use issue [Unknown]
  - Product prescribing error [Unknown]
  - Intentional product use issue [Unknown]
